FAERS Safety Report 5693627-0 (Version None)
Quarter: 2008Q2

REPORT INFORMATION
  Report Type: 
  Country: None (occurrence: None)
  Receive Date: 20080328
  Receipt Date: 20070822
  Transmission Date: 20081010
  Serious: Yes (Other)
  Sender: FDA-Public Use
  Company Number: HQWYE850128AUG07

PATIENT
  Age: 69 Year
  Sex: Female
  Weight: 58.11 kg

DRUGS (3)
  1. PROTONIX [Suspect]
     Indication: GASTRITIS
     Dosage: 40 MG 2X PER 1 DAY, ORAL; 40 MG 1X PER 1 DAY, ORAL
     Route: 048
     Dates: start: 20070725, end: 20070814
  2. PROTONIX [Suspect]
     Indication: GASTRITIS
     Dosage: 40 MG 2X PER 1 DAY, ORAL; 40 MG 1X PER 1 DAY, ORAL
     Route: 048
     Dates: start: 20070815, end: 20070820
  3. FOSAMAX [Concomitant]

REACTIONS (3)
  - PHARYNGITIS STREPTOCOCCAL [None]
  - SALIVA ALTERED [None]
  - VOMITING [None]
